FAERS Safety Report 4556540-8 (Version None)
Quarter: 2005Q1

REPORT INFORMATION
  Report Type: 
  Country: None (occurrence: None)
  Receive Date: 20050114
  Receipt Date: 20041230
  Transmission Date: 20050727
  Serious: Yes (Other)
  Sender: FDA-Public Use
  Company Number: 800235

PATIENT
  Age: 75 Year
  Sex: Female

DRUGS (4)
  1. PHYSIOSOL IN PLASTIC CONTAINER [Suspect]
     Indication: PERITONEAL DIALYSIS
     Dosage: 2.5 L;QD;INTRAPERITONEAL
     Route: 033
     Dates: end: 20040101
  2. NUTRINEAL [Suspect]
     Indication: PERITONEAL DIALYSIS
     Dosage: 4 L;QD;INTRAPERITONEAL
     Route: 033
     Dates: end: 20040101
  3. EXTRANEAL [Suspect]
     Indication: PERITONEAL DIALYSIS
     Dosage: 1 L; QD;INTRAPERITONEAL
     Route: 033
     Dates: end: 20040101
  4. UV FLASH TRANSFER SET [Concomitant]

REACTIONS (4)
  - DIALYSIS [None]
  - MEDICAL DEVICE COMPLICATION [None]
  - PERITONITIS [None]
  - STAPHYLOCOCCAL INFECTION [None]
